FAERS Safety Report 10584654 (Version 1)
Quarter: 2014Q4

REPORT INFORMATION
  Report Type: Spontaneous
  Country: US (occurrence: None)
  Receive Date: 20141112
  Receipt Date: 20141112
  Transmission Date: 20150529
  Serious: Yes (Other)
  Sender: FDA-Public Use
  Company Number: JPI-P-019946

PATIENT
  Age: 41 Year
  Sex: Female
  Weight: 98.2 kg

DRUGS (13)
  1. SOMA [Concomitant]
     Active Substance: CARISOPRODOL
  2. XYREM [Suspect]
     Active Substance: SODIUM OXYBATE
     Indication: NARCOLEPSY
     Dosage: UNKNOWN
     Route: 048
     Dates: start: 20101119
  3. DIAZEPAM. [Concomitant]
     Active Substance: DIAZEPAM
  4. CLONAZEPAM. [Concomitant]
     Active Substance: CLONAZEPAM
  5. DETROL [Concomitant]
     Active Substance: TOLTERODINE TARTRATE
  6. PANTOPRAZOLE [Concomitant]
     Active Substance: PANTOPRAZOLE SODIUM
  7. AMITRIPTYLINE [Concomitant]
     Active Substance: AMITRIPTYLINE
  8. IMIPRAMINE [Concomitant]
     Active Substance: IMIPRAMINE
  9. HYDROCODONE/ACETAMINOPHEN [Concomitant]
     Active Substance: ACETAMINOPHEN\HYDROCODONE
  10. PERPHENAZINE. [Concomitant]
     Active Substance: PERPHENAZINE
  11. METHYLPHENIDATE [Concomitant]
     Active Substance: METHYLPHENIDATE
  12. BUSPAR [Concomitant]
     Active Substance: BUSPIRONE HYDROCHLORIDE
  13. LAMOTRIGINE. [Concomitant]
     Active Substance: LAMOTRIGINE

REACTIONS (15)
  - Hemiplegia [None]
  - Tooth loss [None]
  - Back pain [None]
  - Cyst [None]
  - Intervertebral disc protrusion [None]
  - Nausea [None]
  - Dental pulp disorder [None]
  - Headache [None]
  - Food allergy [None]
  - Arthralgia [None]
  - Muscle spasms [None]
  - Transient ischaemic attack [None]
  - Intentional product misuse [None]
  - Spinal cord infection [None]
  - Coeliac disease [None]

NARRATIVE: CASE EVENT DATE: 2012
